FAERS Safety Report 5987192-8 (Version None)
Quarter: 2008Q4

REPORT INFORMATION
  Report Type: 
  Country: None (occurrence: None)
  Receive Date: 20081209
  Receipt Date: 20081127
  Transmission Date: 20090506
  Serious: Yes (Other)
  Sender: FDA-Public Use
  Company Number: GB-ELI_LILLY_AND_COMPANY-GB200811006340

PATIENT
  Age: 63 Year
  Sex: Male
  Weight: 126 kg

DRUGS (10)
  1. BYETTA [Suspect]
     Indication: DIABETES MELLITUS
     Dosage: 5 UG, UNKNOWN
     Route: 058
     Dates: start: 20080901, end: 20081021
  2. ALVERINE [Concomitant]
     Dosage: 120 MG, 3/D
     Route: 065
  3. FUROSEMIDE [Concomitant]
     Dosage: 20 MG, DAILY (1/D)
     Route: 065
  4. LANTUS [Concomitant]
     Dosage: UNK, UNKNOWN
     Route: 065
  5. LEVOTHYROXINE SODIUM [Concomitant]
     Dosage: 0.1 MG, 2/D
     Route: 065
  6. LIDOCAINE HYDROCHLORIDE [Concomitant]
     Dosage: 2 ML, UNKNOWN
     Route: 065
  7. NOVORAPID [Concomitant]
     Dosage: UNK, UNKNOWN
     Route: 065
  8. RANITIDINE [Concomitant]
     Dosage: 150 MG, 2/D
     Route: 065
  9. SPIRONOLACTONE [Concomitant]
     Dosage: 100 MG, 2/D
     Route: 065
  10. TAMSULOSIN HCL [Concomitant]
     Dosage: 400 UG, DAILY (1/D)
     Route: 065

REACTIONS (3)
  - BEDRIDDEN [None]
  - CONFUSIONAL STATE [None]
  - MALAISE [None]
